FAERS Safety Report 20757656 (Version 1)
Quarter: 2022Q2

REPORT INFORMATION
  Report Type: Report from Study
  Country: CO (occurrence: CO)
  Receive Date: 20220427
  Receipt Date: 20220427
  Transmission Date: 20220720
  Serious: Yes (Other)
  Sender: FDA-Public Use
  Company Number: CO-NOVARTISPH-NVSC2022CO096903

PATIENT
  Sex: Male
  Weight: 93 kg

DRUGS (4)
  1. VALSARTAN [Suspect]
     Active Substance: VALSARTAN
     Indication: Hypertension
     Dosage: 160 MG, QD, (STARTED 35 YEARS AGO)
     Route: 048
  2. ALLOPURINOL [Concomitant]
     Active Substance: ALLOPURINOL
     Indication: Blood uric acid
     Dosage: 100 MG, QD, (STARTED 35 YEARS AGO)
     Route: 048
  3. NORTRICOL [Concomitant]
     Indication: Blood triglycerides increased
     Dosage: 200 MG, QD, (STARTED 5 MONTHS AGO)
     Route: 048
  4. NORTRICOL [Concomitant]
     Indication: Blood cholesterol increased

REACTIONS (1)
  - Psoriatic arthropathy [Recovering/Resolving]
